FAERS Safety Report 10271676 (Version 2)
Quarter: 2019Q3

REPORT INFORMATION
  Report Type: Report from Study
  Country: US (occurrence: US)
  Receive Date: 20140701
  Receipt Date: 20190801
  Transmission Date: 20191004
  Serious: No
  Sender: FDA-Public Use
  Company Number: US-SA-2013SA112542

PATIENT
  Age: 34 Year
  Sex: Female
  Weight: 48.1 kg

DRUGS (4)
  1. IMIGLUCERASE [Suspect]
     Active Substance: IMIGLUCERASE
     Indication: GAUCHER^S DISEASE
     Dosage: 2800.00, Q4
     Route: 042
     Dates: start: 20030903
  2. IMIGLUCERASE [Suspect]
     Active Substance: IMIGLUCERASE
     Dosage: 58.21 IU/KG, Q4W
     Route: 042
  3. IMIGLUCERASE [Suspect]
     Active Substance: IMIGLUCERASE
     Dosage: UNK, QM
     Route: 042
  4. IMIGLUCERASE [Suspect]
     Active Substance: IMIGLUCERASE
     Dosage: UNK
     Route: 042
     Dates: start: 200412

REACTIONS (2)
  - Product use issue [Unknown]
  - Exposure during pregnancy [Unknown]
